FAERS Safety Report 14055627 (Version 1)
Quarter: 2017Q4

REPORT INFORMATION
  Report Type: Spontaneous
  Country: FR (occurrence: FR)
  Receive Date: 20171006
  Receipt Date: 20171006
  Transmission Date: 20180321
  Serious: Yes (Hospitalization)
  Sender: FDA-Public Use
  Company Number: FR-ROCHE-2002891

PATIENT
  Age: 84 Year
  Sex: Male

DRUGS (3)
  1. MABTHERA [Suspect]
     Active Substance: RITUXIMAB
     Indication: CHRONIC LYMPHOCYTIC LEUKAEMIA
     Dosage: FOR 6 MONTHS
     Route: 041
     Dates: start: 2013
  2. CHLORAMINOPHENE [Suspect]
     Active Substance: CHLORAMBUCIL
     Indication: CHRONIC LYMPHOCYTIC LEUKAEMIA
     Dosage: FOR 8 MONTHS
     Route: 041
     Dates: start: 2009
  3. CHLORAMINOPHENE [Suspect]
     Active Substance: CHLORAMBUCIL
     Dosage: FOR 6 MONTHS
     Route: 042
     Dates: start: 2013

REACTIONS (1)
  - Progressive multifocal leukoencephalopathy [Not Recovered/Not Resolved]

NARRATIVE: CASE EVENT DATE: 201707
